FAERS Safety Report 6962102-5 (Version None)
Quarter: 2010Q3

REPORT INFORMATION
  Report Type: 
  Country: None (occurrence: None)
  Receive Date: 20100823
  Receipt Date: 20100708
  Transmission Date: 20110219
  Serious: No
  Sender: FDA-Public Use
  Company Number: 003507

PATIENT
  Sex: Male
  Weight: 100 kg

DRUGS (4)
  1. CIMZIA [Suspect]
     Indication: CROHN'S DISEASE
     Dosage: (SUBCUTANEOUS)
     Route: 058
     Dates: start: 20091205
  2. CIMZIA [Suspect]
  3. MERCAPTOPURINE [Concomitant]
  4. LIPITOR [Concomitant]

REACTIONS (10)
  - ARTHRALGIA [None]
  - BLISTER [None]
  - CONTUSION [None]
  - HEADACHE [None]
  - NASOPHARYNGITIS [None]
  - OROPHARYNGEAL PAIN [None]
  - PAIN IN EXTREMITY [None]
  - RHINORRHOEA [None]
  - TREMOR [None]
  - VISION BLURRED [None]
